FAERS Safety Report 7150150-4 (Version None)
Quarter: 2010Q4

REPORT INFORMATION
  Report Type: 
  Country: None (occurrence: None)
  Receive Date: 20101124
  Receipt Date: 20101117
  Transmission Date: 20110411
  Serious: Yes (Other)
  Sender: FDA-Public Use
  Company Number: 2010SP056724

PATIENT
  Age: 35 Year
  Sex: Female

DRUGS (3)
  1. SAPHRIS [Suspect]
     Indication: AFFECTIVE DISORDER
     Dosage: 5 MG;BID;SL
     Route: 060
     Dates: start: 20101020, end: 20101021
  2. PROZAC [Concomitant]
  3. SEROQUEL [Concomitant]

REACTIONS (2)
  - OFF LABEL USE [None]
  - THROAT TIGHTNESS [None]
